FAERS Safety Report 4924942-3 (Version None)
Quarter: 2006Q1

REPORT INFORMATION
  Report Type: 
  Country: None (occurrence: None)
  Receive Date: 20060222
  Receipt Date: 20060215
  Transmission Date: 20060701
  Serious: Yes (Other)
  Sender: FDA-Public Use
  Company Number: TUK2006A00001

PATIENT
  Age: 57 Year
  Sex: Male

DRUGS (8)
  1. ACTOS [Suspect]
     Indication: DIABETES MELLITUS
     Dosage: 15 MG
     Route: 048
     Dates: start: 20041101, end: 20051101
  2. ALLOPURINOL [Concomitant]
  3. DOXAZOSIN (DOXAZOSIN) [Concomitant]
  4. OMEPRAZOLE [Concomitant]
  5. ADIZEM-XL                     (DILTIAZEM HYDROCHLORIDE) [Concomitant]
  6. METFORMIN HCL [Concomitant]
  7. KETOPROFEN [Concomitant]
  8. VALSARTAN [Concomitant]

REACTIONS (3)
  - ABASIA [None]
  - HYPERAESTHESIA [None]
  - MYALGIA [None]
